FAERS Safety Report 11533020 (Version 1)
Quarter: 2015Q3

REPORT INFORMATION
  Report Type: Spontaneous
  Country: US (occurrence: US)
  Receive Date: 20150921
  Receipt Date: 20150921
  Transmission Date: 20151125
  Serious: No
  Sender: FDA-Public Use
  Company Number: ALCN2015US005780

PATIENT
  Sex: Female

DRUGS (1)
  1. OLOPATIDINE NASAL SPRAY [Suspect]
     Active Substance: OLOPATADINE
     Dosage: UNK
     Route: 045
     Dates: start: 20150728

REACTIONS (1)
  - Nasal discomfort [Unknown]

NARRATIVE: CASE EVENT DATE: 20150728
